FAERS Safety Report 8315056-3 (Version None)
Quarter: 2012Q2

REPORT INFORMATION
  Report Type: 
  Country: None (occurrence: None)
  Receive Date: 20120426
  Receipt Date: 20120418
  Transmission Date: 20120825
  Serious: No
  Sender: FDA-Public Use
  Company Number: US-JNJFOC-20120409168

PATIENT
  Sex: Male
  Weight: 88.45 kg

DRUGS (4)
  1. HYDROCODONE [Concomitant]
     Indication: PAIN
     Route: 048
  2. FENTANYL-100 [Suspect]
     Route: 062
     Dates: start: 20120401
  3. FENTANYL-100 [Suspect]
     Route: 062
     Dates: start: 20120101, end: 20120401
  4. FENTANYL-100 [Suspect]
     Indication: BACK PAIN
     Route: 062
     Dates: start: 20120301

REACTIONS (3)
  - PRODUCT QUALITY ISSUE [None]
  - WRONG TECHNIQUE IN DRUG USAGE PROCESS [None]
  - DERMATITIS CONTACT [None]
